FAERS Safety Report 9329845 (Version 1)
Quarter: 2013Q2

REPORT INFORMATION
  Report Type: Spontaneous
  Country: US (occurrence: None)
  Receive Date: 20130531
  Receipt Date: 20130531
  Transmission Date: 20140414
  Serious: Yes (Hospitalization)
  Sender: FDA-Public Use
  Company Number: 1732733

PATIENT
  Sex: 0

DRUGS (5)
  1. ISOFLURANE [Suspect]
     Indication: GENERAL ANAESTHESIA
  2. MIDAZOLAM [Suspect]
     Indication: GENERAL ANAESTHESIA
  3. NALOXONE HYDROCHLORIDE [Suspect]
     Indication: DETOXIFICATION
  4. PROPOFOL (PROPOFOL) [Suspect]
     Indication: GENERAL ANAESTHESIA
  5. NALTREXONE [Suspect]
     Indication: DETOXIFICATION

REACTIONS (4)
  - Mental status changes [None]
  - Pneumomediastinum [None]
  - Respiratory distress [None]
  - Pulmonary oedema [None]
